FAERS Safety Report 7502451-5 (Version None)
Quarter: 2011Q2

REPORT INFORMATION
  Report Type: 
  Country: None (occurrence: None)
  Receive Date: 20110525
  Receipt Date: 20110519
  Transmission Date: 20111010
  Serious: Yes (Death, Hospitalization)
  Sender: FDA-Public Use
  Company Number: GB-B.I. PHARMACEUTICALS,INC./RIDGEFIELD-2011-UK-00440UK

PATIENT
  Sex: Female
  Weight: 54 kg

DRUGS (13)
  1. EZETIMIBE [Concomitant]
     Indication: BLOOD CHOLESTEROL INCREASED
     Dosage: 10 MG
     Route: 048
  2. RAMIPRIL [Concomitant]
     Dosage: 5 MG
     Route: 048
  3. BISOPROLOL FUMARATE [Concomitant]
     Indication: CORONARY ARTERY BYPASS
  4. EZETIMIBE [Concomitant]
     Indication: MYOCARDIAL INFARCTION
  5. BISOPROLOL FUMARATE [Concomitant]
     Indication: MYOCARDIAL INFARCTION
  6. PRADAXA [Suspect]
     Indication: HIP ARTHROPLASTY
     Dosage: 150 MG
     Route: 048
  7. OMEPRAZOLE [Concomitant]
     Indication: DUODENAL ULCER
     Dosage: 20 MG
     Route: 048
  8. BISOPROLOL FUMARATE [Concomitant]
     Indication: HYPERTENSION
     Dosage: 2.5 MG
     Route: 048
  9. EZETIMIBE [Concomitant]
     Indication: CORONARY ARTERY BYPASS
  10. OXYCODONE HCL [Concomitant]
     Indication: PROCEDURAL PAIN
     Dosage: 5-10MG  4HOURLY PRN
     Route: 048
  11. ACETAMINOPHEN [Concomitant]
     Indication: PROCEDURAL PAIN
     Dosage: 4 G
     Route: 048
  12. OXYCONTIN [Concomitant]
     Indication: PROCEDURAL PAIN
     Dosage: 20 MG
     Route: 048
  13. SENNA AND LACTULOSE [Concomitant]
     Indication: POST PROCEDURAL CONSTIPATION
     Dosage: PRN BD
     Route: 048

REACTIONS (7)
  - RENAL FAILURE [None]
  - ABDOMINAL PAIN [None]
  - INFLAMMATION OF WOUND [None]
  - HYPOTENSION [None]
  - MULTI-ORGAN FAILURE [None]
  - HAEMATEMESIS [None]
  - MUCOSAL ULCERATION [None]
